FAERS Safety Report 18934885 (Version 5)
Quarter: 2021Q4

REPORT INFORMATION
  Report Type: Spontaneous
  Country: US (occurrence: US)
  Receive Date: 20210224
  Receipt Date: 20211215
  Transmission Date: 20220303
  Serious: No
  Sender: FDA-Public Use
  Company Number: US-PFIZER INC-2021156034

PATIENT
  Age: 22 Year
  Sex: Female
  Weight: 72.57 kg

DRUGS (1)
  1. DEPO-PROVERA [Suspect]
     Active Substance: MEDROXYPROGESTERONE ACETATE
     Indication: Contraception
     Dosage: 104 MG, EVERY 3 MONTHS (ADMINISTERED TO SIDE BUTTOCK AREA)
     Dates: start: 2020

REACTIONS (5)
  - Poor quality device used [Unknown]
  - Device use error [Unknown]
  - Drug dose omission by device [Unknown]
  - Device defective [Unknown]
  - Product administered at inappropriate site [Unknown]

NARRATIVE: CASE EVENT DATE: 20200101
